FAERS Safety Report 12493345 (Version 1)
Quarter: 2016Q2

REPORT INFORMATION
  Report Type: Spontaneous
  Country: MX (occurrence: MX)
  Receive Date: 20160623
  Receipt Date: 20160623
  Transmission Date: 20160815
  Serious: Yes (Other)
  Sender: FDA-Public Use
  Company Number: MX-SA-2016SA113985

PATIENT
  Age: 56 Year
  Sex: Female
  Weight: 84 kg

DRUGS (1)
  1. APROVEL [Suspect]
     Active Substance: IRBESARTAN
     Indication: HYPERTENSION
     Route: 048
     Dates: start: 2009, end: 2015

REACTIONS (4)
  - Hypertension [Recovered/Resolved]
  - Diabetes mellitus [Not Recovered/Not Resolved]
  - Conjunctival hyperaemia [Recovered/Resolved]
  - Stress [Recovered/Resolved]

NARRATIVE: CASE EVENT DATE: 2012
